FAERS Safety Report 12993772 (Version 1)
Quarter: 2016Q4

REPORT INFORMATION
  Report Type: Spontaneous
  Country: US (occurrence: US)
  Receive Date: 20161202
  Receipt Date: 20161202
  Transmission Date: 20170207
  Serious: No
  Sender: FDA-Public Use
  Company Number: US-JNJFOC-20161100665

PATIENT
  Age: 35 Year
  Sex: Female
  Weight: 68.04 kg

DRUGS (2)
  1. NIZORAL A-D [Suspect]
     Active Substance: KETOCONAZOLE
     Route: 061
  2. NIZORAL A-D [Suspect]
     Active Substance: KETOCONAZOLE
     Indication: MALASSEZIA INFECTION
     Dosage: DOSE: DIME SIZE AMOUNT USED FIVE TIMES
     Route: 061

REACTIONS (1)
  - Unintentional use for unapproved indication [Unknown]
